FAERS Safety Report 17573415 (Version 2)
Quarter: 2020Q1

REPORT INFORMATION
  Report Type: Report from Study
  Country: IT (occurrence: IT)
  Receive Date: 20200323
  Receipt Date: 20200324
  Transmission Date: 20200409
  Serious: Yes (Other)
  Sender: FDA-Public Use
  Company Number: IT-INCYTE CORPORATION-2019IN002116

PATIENT

DRUGS (2)
  1. JAKAVI [Suspect]
     Active Substance: RUXOLITINIB
     Indication: POLYCYTHAEMIA VERA
     Dosage: 20 OT, UNK
     Route: 048
     Dates: start: 20180411
  2. CARDIOASPIRINA [Concomitant]
     Active Substance: ASPIRIN
     Indication: SUPPORTIVE CARE
     Dosage: 100 OT, UNK
     Route: 065
     Dates: start: 20150309

REACTIONS (2)
  - Gamma-glutamyltransferase increased [Recovered/Resolved]
  - Phlebitis [Recovered/Resolved]

NARRATIVE: CASE EVENT DATE: 20180829
